FAERS Safety Report 6401749-1 (Version None)
Quarter: 2009Q4

REPORT INFORMATION
  Report Type: 
  Country: None (occurrence: None)
  Receive Date: 20091015
  Receipt Date: 20091006
  Transmission Date: 20100525
  Serious: Yes (Hospitalization)
  Sender: FDA-Public Use
  Company Number: FR-ASTRAZENECA-2009CG00585

PATIENT
  Age: 24073 Day
  Sex: Female
  Weight: 69 kg

DRUGS (10)
  1. FASLODEX [Suspect]
     Indication: BREAST CANCER METASTATIC
     Route: 030
     Dates: start: 20071214
  2. FASLODEX [Suspect]
     Dosage: DAY FIFTEEN
     Route: 030
  3. FASLODEX [Suspect]
     Route: 030
  4. ENZASTAUR CODE NOT BROKEN [Suspect]
     Indication: BREAST CANCER METASTATIC
     Route: 048
     Dates: start: 20071214
  5. ENZASTAUR CODE NOT BROKEN [Suspect]
     Route: 048
  6. DIAMOX SRC [Concomitant]
     Indication: GLAUCOMA
  7. OXYNORM [Concomitant]
     Indication: PAIN
     Dates: start: 20060326
  8. XALATAN [Concomitant]
     Indication: GLAUCOMA
  9. FORLAX [Concomitant]
  10. PRAZEPAM [Concomitant]

REACTIONS (1)
  - PHLEBITIS [None]
